FAERS Safety Report 16498458 (Version 1)
Quarter: 2019Q2

REPORT INFORMATION
  Report Type: Spontaneous
  Country: IN (occurrence: IN)
  Receive Date: 20190629
  Receipt Date: 20190629
  Transmission Date: 20190711
  Serious: No
  Sender: FDA-Public Use
  Company Number: IN-MACLEODS PHARMACEUTICALS LTD-MAC2019021781

PATIENT

DRUGS (4)
  1. SYNDOPA PLUS [Concomitant]
     Indication: PARKINSON^S DISEASE
     Dosage: UNK
     Route: 048
  2. GEMINOR M1 [Suspect]
     Active Substance: GLIMEPIRIDE\METFORMIN
     Indication: DIABETES MELLITUS
     Dosage: UNK, SLOW RELEASE TABLET
     Route: 048
  3. GEMINOR M1 [Suspect]
     Active Substance: GLIMEPIRIDE\METFORMIN
     Dosage: UNK, SLOW RELEASE TABLET
     Route: 048
     Dates: start: 20190617
  4. CIDOGREL A [Concomitant]
     Indication: PRODUCT USED FOR UNKNOWN INDICATION
     Dosage: UNK
     Route: 065

REACTIONS (4)
  - Vomiting [Unknown]
  - Asthenia [Unknown]
  - Nausea [Unknown]
  - Product solubility abnormal [Unknown]

NARRATIVE: CASE EVENT DATE: 20190612
